FAERS Safety Report 7798477-7 (Version None)
Quarter: 2011Q4

REPORT INFORMATION
  Report Type: 
  Country: None (occurrence: None)
  Receive Date: 20111005
  Receipt Date: 20110926
  Transmission Date: 20120403
  Serious: Yes (Hospitalization)
  Sender: FDA-Public Use
  Company Number: ES-ELI_LILLY_AND_COMPANY-ES201109007376

PATIENT
  Sex: Female
  Weight: 61.4 kg

DRUGS (8)
  1. CALCIUM CARBONATE [Concomitant]
     Indication: BONE DISORDER
     Dosage: UNK, QD
     Route: 048
  2. FORTEO [Suspect]
     Indication: OSTEOPOROSIS
     Dosage: 20 UG, QD
     Route: 058
     Dates: start: 20110808
  3. IBUPROFEN [Concomitant]
     Dosage: 600 MG, TID
     Route: 048
  4. ALCADOL [Concomitant]
     Dosage: 8 MG, TID
     Route: 048
  5. AMOXICILINA                        /00249602/ [Concomitant]
     Indication: ANTIBIOTIC THERAPY
     Dosage: UNK, TID
     Route: 048
  6. OMEPRAZOLE [Concomitant]
     Indication: PROPHYLAXIS
     Dosage: 20 MG, QD
     Route: 048
  7. BUPRENORPHINE [Concomitant]
     Indication: PAIN
     Dosage: 52.5 UG, OTHER
     Route: 062
  8. PRIMPERAN TAB [Concomitant]
     Indication: VOMITING
     Dosage: UNK, QD
     Route: 048

REACTIONS (1)
  - GALLBLADDER OPERATION [None]
